FAERS Safety Report 8619950 (Version 5)
Quarter: 2012Q4

REPORT INFORMATION
  Report Type: 
  Country: US (occurrence: US)
  Receive Date: 20120618
  Receipt Date: 20121026
  Transmission Date: 20130627
  Serious: Yes (Hospitalization, Other)
  Sender: FDA-Public Use
  Company Number: US-009507513-1203USA00181

PATIENT

DRUGS (8)
  1. FOSAMAX [Suspect]
     Indication: OSTEOPOROSIS
     Dosage: 70 mg, UNK
     Route: 048
     Dates: start: 20030702, end: 20060915
  2. FOSAMAX [Suspect]
     Dosage: UNK
     Route: 048
     Dates: start: 200701, end: 201012
  3. FOSAMAX PLUS D [Suspect]
     Indication: OSTEOPOROSIS
     Dosage: 70mg/2800, UNK
     Route: 048
     Dates: start: 20061030, end: 20101217
  4. FOSAMAX PLUS D [Suspect]
     Dosage: 70 mg/2800
     Route: 048
     Dates: start: 20070119, end: 200804
  5. FOSAMAX PLUS D [Suspect]
     Dosage: 70 mg/2800
     Route: 048
     Dates: start: 20100828
  6. FOSAMAX [Suspect]
     Dosage: 70 mg, UNK
     Route: 048
     Dates: start: 20100217, end: 201005
  7. FOSAMAX [Suspect]
     Dosage: 70 mg, UNK
     Route: 048
     Dates: start: 20100706, end: 201009
  8. FOSAMAX [Suspect]
     Dosage: 70 mg, UNK
     Route: 048
     Dates: start: 20100507, end: 201007

REACTIONS (28)
  - Femoral neck fracture [Recovering/Resolving]
  - Lumbar vertebral fracture [Unknown]
  - Ankle fracture [Unknown]
  - Impaired self-care [Unknown]
  - Clostridium difficile colitis [Unknown]
  - Hip fracture [Unknown]
  - Foot fracture [Unknown]
  - Anaemia postoperative [Unknown]
  - Myocardial infarction [Unknown]
  - Gait disturbance [Unknown]
  - Escherichia urinary tract infection [Unknown]
  - Orthostatic hypertension [Unknown]
  - Excoriation [Unknown]
  - Radius fracture [Unknown]
  - Ulna fracture [Unknown]
  - Nerve conduction studies [Unknown]
  - Head injury [Unknown]
  - Micturition urgency [Unknown]
  - Cognitive disorder [Unknown]
  - Cellulitis [Recovered/Resolved]
  - Gingivitis [Unknown]
  - Urinary incontinence [Unknown]
  - Fall [Unknown]
  - Osteoarthritis [Unknown]
  - Hiatus hernia [Unknown]
  - Constipation [Unknown]
  - Hypocalcaemia [Unknown]
  - Gastrooesophageal reflux disease [Unknown]
